FAERS Safety Report 24076619 (Version 2)
Quarter: 2024Q3

REPORT INFORMATION
  Report Type: Spontaneous
  Country: US (occurrence: US)
  Receive Date: 20240711
  Receipt Date: 20240718
  Transmission Date: 20241017
  Serious: Yes (Hospitalization, Other)
  Sender: ALKEM
  Company Number: None

PATIENT
  Age: 18 Year
  Sex: Male

DRUGS (1)
  1. IBUPROFEN [Suspect]
     Active Substance: IBUPROFEN
     Indication: Upper respiratory tract infection
     Dosage: UNK ((400-600 MILLIGRAM EVERY SIX TO EIGHT HOURS)
     Route: 065

REACTIONS (7)
  - Dieulafoy^s vascular malformation [Recovered/Resolved]
  - Gastric mucosal lesion [Recovered/Resolved]
  - Syncope [Recovered/Resolved]
  - Haemoglobin decreased [Recovered/Resolved]
  - Haematemesis [Recovered/Resolved]
  - Melaena [Recovered/Resolved]
  - Self-medication [Unknown]
